FAERS Safety Report 7971034-5 (Version None)
Quarter: 2011Q4

REPORT INFORMATION
  Report Type: 
  Country: None (occurrence: None)
  Receive Date: 20111212
  Receipt Date: 20111212
  Transmission Date: 20120403
  Serious: Yes (Hospitalization)
  Sender: FDA-Public Use
  Company Number: None

PATIENT
  Sex: Female
  Weight: 103 kg

DRUGS (5)
  1. ALPRAZOLAM [Concomitant]
     Route: 048
  2. LEXAPRO [Concomitant]
     Route: 048
  3. PROTONIX [Concomitant]
     Route: 048
  4. ACETAMINOPHEN-HYDROCODONE 325 MG-75 MG [Concomitant]
     Route: 048
  5. VORINOSTAT [Suspect]
     Indication: BREAST CANCER METASTATIC
     Dosage: 300 MG
     Route: 048
     Dates: start: 20111121, end: 20111127

REACTIONS (8)
  - NAUSEA [None]
  - BLOOD POTASSIUM DECREASED [None]
  - WHITE BLOOD CELL COUNT DECREASED [None]
  - NEUTROPHIL COUNT DECREASED [None]
  - BLOOD MAGNESIUM DECREASED [None]
  - ELECTROCARDIOGRAM QT PROLONGED [None]
  - DEHYDRATION [None]
  - VOMITING [None]
